FAERS Safety Report 10384031 (Version 1)
Quarter: 2014Q1

REPORT INFORMATION
  Report Type: Spontaneous
  Country: US (occurrence: None)
  Receive Date: 20140306
  Receipt Date: 20140306
  Transmission Date: 20141002
  Serious: Yes (Other)
  Sender: FDA-Public Use
  Company Number: 163-21880-13054675

PATIENT
  Age: 62 Year
  Sex: Female
  Weight: 63.5 kg

DRUGS (9)
  1. REVLIMID (LENALIDOMIDE) (5 MILLIGRAM, CAPSULES) [Suspect]
     Indication: AMYLOIDOSIS
     Dosage: 5 MG, 21 IN 21 D
     Route: 048
     Dates: start: 20130103
  2. CENTRUM SILVER [Concomitant]
  3. LIPITOR (ATORVASTATIN) [Concomitant]
  4. ACYCLOVIR (ACICLOVIR) [Concomitant]
  5. OCUVITE [Concomitant]
  6. ASPIRIN (ACETYLSALICYLIC ACID) [Concomitant]
  7. CITRACAL +D [Concomitant]
  8. LISINOPRIL [Concomitant]
  9. VITAMIN B [Concomitant]

REACTIONS (1)
  - Bursitis [None]
